FAERS Safety Report 8515417-3 (Version None)
Quarter: 2012Q3

REPORT INFORMATION
  Report Type: 
  Country: None (occurrence: None)
  Receive Date: 20120717
  Receipt Date: 20120706
  Transmission Date: 20120928
  Serious: Yes (Hospitalization)
  Sender: FDA-Public Use
  Company Number: US-VERTEX PHARMACEUTICALS INC.-AE-2012-010185

PATIENT
  Sex: Female

DRUGS (3)
  1. RIBAVIRIN [Concomitant]
     Indication: HEPATITIS C
     Dates: start: 20111122, end: 20120508
  2. PEGASYS [Concomitant]
     Indication: HEPATITIS C
     Dates: start: 20111122, end: 20120508
  3. INCIVEK [Suspect]
     Indication: HEPATITIS C
     Route: 048
     Dates: start: 20111122, end: 20120214

REACTIONS (6)
  - WHITE BLOOD CELL COUNT DECREASED [None]
  - RED BLOOD CELL COUNT DECREASED [None]
  - ORAL DISORDER [None]
  - STOMATITIS [None]
  - INSOMNIA [None]
  - ASTHENIA [None]
